FAERS Safety Report 6808088-5 (Version None)
Quarter: 2010Q2

REPORT INFORMATION
  Report Type: 
  Country: None (occurrence: None)
  Receive Date: 20100629
  Receipt Date: 20090523
  Transmission Date: 20101027
  Serious: No
  Sender: FDA-Public Use
  Company Number: US-PFIZER INC-2009191502

PATIENT
  Sex: Female

DRUGS (2)
  1. TIKOSYN [Suspect]
     Indication: ATRIAL FIBRILLATION
     Dosage: 0.25 MG, 2X/DAY
     Route: 048
     Dates: start: 20081101
  2. BENICAR [Concomitant]

REACTIONS (1)
  - OEDEMA PERIPHERAL [None]
